FAERS Safety Report 17815986 (Version 2)
Quarter: 2020Q2

REPORT INFORMATION
  Report Type: Report from Study
  Country: GB (occurrence: GB)
  Receive Date: 20200522
  Receipt Date: 20200617
  Transmission Date: 20200714
  Serious: Yes (Death, Hospitalization)
  Sender: FDA-Public Use
  Company Number: NVSC2020GB112887

PATIENT
  Sex: Male

DRUGS (1)
  1. SANDOSTATIN LAR DEPOT [Suspect]
     Active Substance: OCTREOTIDE ACETATE
     Indication: NEUROENDOCRINE TUMOUR
     Dosage: 30 MG, Q4W
     Route: 030

REACTIONS (6)
  - Loss of consciousness [Unknown]
  - Infection [Unknown]
  - Decubitus ulcer [Recovering/Resolving]
  - Dyspnoea [Unknown]
  - Cough [Unknown]
  - Death [Fatal]
